FAERS Safety Report 4738506-8 (Version None)
Quarter: 2005Q3

REPORT INFORMATION
  Report Type: 
  Country: None (occurrence: None)
  Receive Date: 20050803
  Receipt Date: 20050725
  Transmission Date: 20060218
  Serious: Yes (Hospitalization, Other)
  Sender: FDA-Public Use
  Company Number: CH-2005-005429

PATIENT
  Age: 70 Year
  Sex: Male

DRUGS (13)
  1. ULTRAVIST 300 [Suspect]
     Indication: ARTERIOGRAM CORONARY
     Dosage: SEE IMAGE, INTRAVENOUS
     Route: 042
     Dates: start: 20041222, end: 20041222
  2. ULTRAVIST 300 [Suspect]
     Indication: ARTERIOGRAM CORONARY
     Dosage: SEE IMAGE, INTRAVENOUS
     Route: 042
     Dates: start: 20041224, end: 20041224
  3. ACETYLCYSTEINE [Concomitant]
  4. HEPARIN [Concomitant]
  5. ASPIRIN [Concomitant]
  6. PLAVIX [Concomitant]
  7. ZESTRIL [Concomitant]
  8. AUGMENTIN '125' [Concomitant]
  9. SELIPRAN (PRAVASTATIN SODIUM) [Concomitant]
  10. MADOPAR (BENSERAZIDE HYDROCHLORIDE, LEVODOPA) [Concomitant]
  11. NEXIUM [Concomitant]
  12. NEPRO (FATS NOS, CARBOHYDRATES NOS, VITAMINS NOS, PROTEIN, MINERALS NO [Concomitant]
  13. DEXTROSE 5% [Concomitant]

REACTIONS (16)
  - ACUTE RESPIRATORY DISTRESS SYNDROME [None]
  - ATRIAL FLUTTER [None]
  - DELIRIUM [None]
  - DILATATION ATRIAL [None]
  - FUNGAL INFECTION [None]
  - HYPERTENSIVE CRISIS [None]
  - LUNG INFECTION [None]
  - NORMOCHROMIC NORMOCYTIC ANAEMIA [None]
  - PROCEDURAL COMPLICATION [None]
  - PULMONARY ALVEOLAR HAEMORRHAGE [None]
  - PULMONARY OEDEMA [None]
  - RENAL FAILURE [None]
  - STAPHYLOCOCCAL INFECTION [None]
  - THROMBOSIS IN DEVICE [None]
  - TRICUSPID VALVE INCOMPETENCE [None]
  - VENTRICULAR DYSFUNCTION [None]
